FAERS Safety Report 8846085 (Version 2)
Quarter: 2012Q4

REPORT INFORMATION
  Report Type: 
  Country: US (occurrence: US)
  Receive Date: 20121017
  Receipt Date: 20121120
  Transmission Date: 20130627
  Serious: No
  Sender: FDA-Public Use
  Company Number: US-TEVA-364440USA

PATIENT
  Age: 45 Year
  Sex: Female

DRUGS (5)
  1. NUVIGIL [Suspect]
     Indication: HYPERSOMNIA
     Dosage: 75 Milligram Daily; 1/2 of a 150 mg tablet every morning (Mon-Fri)
     Route: 048
     Dates: start: 20110128, end: 2012
  2. TRIVORA [Concomitant]
  3. VITAMIN D3 [Concomitant]
  4. ALLEGRA-D [Concomitant]
  5. METOPROLOL [Concomitant]

REACTIONS (2)
  - Rash [Recovered/Resolved]
  - Urticaria [Recovered/Resolved]
